FAERS Safety Report 6686913-9 (Version None)
Quarter: 2010Q2

REPORT INFORMATION
  Report Type: 
  Country: None (occurrence: None)
  Receive Date: 20100416
  Receipt Date: 20100416
  Transmission Date: 20101027
  Serious: Yes (Other)
  Sender: FDA-Public Use
  Company Number: None

PATIENT
  Sex: Male
  Weight: 67.1324 kg

DRUGS (1)
  1. TERBINAFINE HCL [Suspect]
     Indication: ONYCHOMYCOSIS
     Dosage: ONE TABLET BY MOUTH EVERY DAY
     Dates: start: 20100106, end: 20100126

REACTIONS (2)
  - PRURITUS GENERALISED [None]
  - RASH GENERALISED [None]
